FAERS Safety Report 8304227-8 (Version None)
Quarter: 2012Q2

REPORT INFORMATION
  Report Type: 
  Country: None (occurrence: None)
  Receive Date: 20120423
  Receipt Date: 20120419
  Transmission Date: 20120825
  Serious: Yes (Hospitalization)
  Sender: FDA-Public Use
  Company Number: FR-EISAI INC-E2020-10671-SPO-FR

PATIENT
  Sex: Female

DRUGS (6)
  1. MIRTAZAPINE [Concomitant]
     Dosage: 15 MG
     Route: 048
     Dates: start: 20100101
  2. ASPIRIN [Concomitant]
     Dosage: 75 MG
     Route: 048
     Dates: start: 20110401
  3. BISOPROLOL FUMARATE [Interacting]
     Dosage: 7.5 MG
     Route: 048
     Dates: start: 20110530, end: 20110607
  4. BISOPROLOL FUMARATE [Interacting]
     Dosage: 5 MG
     Route: 048
     Dates: start: 20110420, end: 20110529
  5. ARICEPT [Suspect]
     Indication: AMNESIA
     Route: 048
     Dates: end: 20110607
  6. CORDARONE [Interacting]
     Dosage: 200 MG
     Route: 048
     Dates: start: 20110420

REACTIONS (2)
  - DRUG INTERACTION [None]
  - SINUS BRADYCARDIA [None]
